FAERS Safety Report 4288173-5 (Version None)
Quarter: 2004Q1

REPORT INFORMATION
  Report Type: 
  Country: None (occurrence: None)
  Receive Date: 20040209
  Receipt Date: 20030825
  Transmission Date: 20041129
  Serious: Yes (Other)
  Sender: FDA-Public Use
  Company Number: US-GLAXOSMITHKLINE-A0424159A

PATIENT
  Age: 36 Year
  Sex: Female
  Weight: 63.6 kg

DRUGS (1)
  1. PAXIL [Suspect]
     Route: 048

REACTIONS (7)
  - ABNORMAL DREAMS [None]
  - BALANCE DISORDER [None]
  - DIZZINESS [None]
  - DRUG WITHDRAWAL SYNDROME [None]
  - HYPERHIDROSIS [None]
  - VERTIGO [None]
  - WEIGHT INCREASED [None]
